FAERS Safety Report 17373416 (Version 3)
Quarter: 2020Q2

REPORT INFORMATION
  Report Type: Report from Study
  Country: CO (occurrence: CO)
  Receive Date: 20200205
  Receipt Date: 20200528
  Transmission Date: 20200713
  Serious: Yes (Hospitalization)
  Sender: FDA-Public Use
  Company Number: NVSC2020CO025388

PATIENT
  Age: 45 Year
  Sex: Female
  Weight: 56.3 kg

DRUGS (4)
  1. FULVESTRANT. [Suspect]
     Active Substance: FULVESTRANT
     Indication: BREAST CANCER
     Dosage: UNK
     Route: 030
     Dates: start: 20191120
  2. KISQALI [Suspect]
     Active Substance: RIBOCICLIB
     Indication: BREAST CANCER METASTATIC
     Dosage: 600 MG, QD
     Route: 048
     Dates: start: 20191103
  3. KISQALI [Suspect]
     Active Substance: RIBOCICLIB
     Dosage: 400 MG, QD (TABLET OF 200 MG)
     Route: 048
  4. LETROZOLE. [Suspect]
     Active Substance: LETROZOLE
     Indication: PRODUCT USED FOR UNKNOWN INDICATION
     Dosage: UNK
     Route: 065
     Dates: start: 201706, end: 20191120

REACTIONS (10)
  - Musculoskeletal chest pain [Unknown]
  - Treatment failure [Unknown]
  - Malaise [Unknown]
  - Back pain [Unknown]
  - Dyspnoea [Unknown]
  - Pain [Unknown]
  - Pleural effusion [Unknown]
  - Nausea [Unknown]
  - Headache [Unknown]
  - Metastases to lung [Unknown]

NARRATIVE: CASE EVENT DATE: 201909
